FAERS Safety Report 8694909 (Version 7)
Quarter: 2013Q3

REPORT INFORMATION
  Report Type: Spontaneous
  Country: BE (occurrence: BE)
  Receive Date: 20120731
  Receipt Date: 20130711
  Transmission Date: 20140515
  Serious: Yes (Hospitalization)
  Sender: FDA-Public Use
  Company Number: PHHY2012BE064563

PATIENT
  Age: 19 Year
  Sex: Female

DRUGS (2)
  1. FTY 720 [Suspect]
     Indication: MULTIPLE SCLEROSIS
     Dosage: 0.5 MG, QD
     Route: 048
     Dates: start: 201110, end: 20120726
  2. TYSABRI [Concomitant]

REACTIONS (12)
  - Autoimmune haemolytic anaemia [Recovering/Resolving]
  - Red blood cell count decreased [Recovering/Resolving]
  - Haptoglobin decreased [Recovering/Resolving]
  - Jaundice [Recovering/Resolving]
  - Pyrexia [Recovering/Resolving]
  - Abdominal pain upper [Recovering/Resolving]
  - Blood lactate dehydrogenase increased [Recovering/Resolving]
  - Nausea [Recovering/Resolving]
  - Chromaturia [Recovering/Resolving]
  - Fatigue [Recovering/Resolving]
  - Hypersensitivity [Recovering/Resolving]
  - Lymphocyte count decreased [Recovering/Resolving]
